FAERS Safety Report 8309305-5 (Version None)
Quarter: 2012Q2

REPORT INFORMATION
  Report Type: 
  Country: None (occurrence: None)
  Receive Date: 20120425
  Receipt Date: 20120412
  Transmission Date: 20120825
  Serious: Yes (Other)
  Sender: FDA-Public Use
  Company Number: US-BRISTOL-MYERS SQUIBB COMPANY-16544801

PATIENT
  Age: 42 Year
  Sex: Male

DRUGS (4)
  1. HYDROCORTISONE [Concomitant]
  2. MITOTANE [Suspect]
     Route: 065
     Dates: start: 20080101
  3. METYRAPONE [Suspect]
     Indication: HYPERCORTICOIDISM
     Route: 065
     Dates: start: 20040101
  4. KETOCONAZOLE [Concomitant]

REACTIONS (2)
  - ADRENAL INSUFFICIENCY [None]
  - ADRENAL ATROPHY [None]
